FAERS Safety Report 19165320 (Version 2)
Quarter: 2021Q2

REPORT INFORMATION
  Report Type: Report from Study
  Country: US (occurrence: US)
  Receive Date: 20210421
  Receipt Date: 20210616
  Transmission Date: 20210717
  Serious: Yes (Hospitalization)
  Sender: FDA-Public Use
  Company Number: US-SEATTLE GENETICS-2021SGN00170

PATIENT
  Sex: Female

DRUGS (1)
  1. TUCATINIB [Suspect]
     Active Substance: TUCATINIB
     Indication: BREAST CANCER FEMALE
     Dosage: UNK

REACTIONS (6)
  - Dysuria [Unknown]
  - Dizziness [Unknown]
  - Hospitalisation [Unknown]
  - Epistaxis [Unknown]
  - Faeces soft [Unknown]
  - Disease progression [Unknown]
